FAERS Safety Report 18398198 (Version 1)
Quarter: 2020Q4

REPORT INFORMATION
  Report Type: Spontaneous
  Country: US (occurrence: US)
  Receive Date: 20201019
  Receipt Date: 20201019
  Transmission Date: 20210114
  Serious: Yes (Hospitalization, Other)
  Sender: FDA-Public Use
  Company Number: None

PATIENT
  Age: 82 Year
  Sex: Male

DRUGS (8)
  1. REPATHA [Suspect]
     Active Substance: EVOLOCUMAB
     Indication: PRODUCT USED FOR UNKNOWN INDICATION
     Dosage: ?          OTHER DOSE:1 PEN;?
     Route: 058
     Dates: start: 20180404
  2. NITROFUR MAC [Concomitant]
     Active Substance: NITROFURANTOIN
  3. DILTIAZEM, [Concomitant]
  4. AZELASTINE. [Concomitant]
     Active Substance: AZELASTINE HYDROCHLORIDE
  5. METOPROL SUC [Concomitant]
  6. EZETIMBE, [Concomitant]
  7. LOSARTAN POT, [Concomitant]
  8. ELIQUIS, [Concomitant]

REACTIONS (2)
  - Therapy interrupted [None]
  - Skin neoplasm excision [None]

NARRATIVE: CASE EVENT DATE: 20201002
